FAERS Safety Report 19923073 (Version 1)
Quarter: 2021Q4

REPORT INFORMATION
  Report Type: Other
  Country: US (occurrence: US)
  Receive Date: 20211005
  Receipt Date: 20211005
  Transmission Date: 20220303
  Serious: Yes (Death, Other)
  Sender: FDA-Public Use
  Company Number: US-ACORDA-ACO_170527_2021

PATIENT
  Age: 82 Year
  Sex: Male

DRUGS (1)
  1. INBRIJA [Suspect]
     Active Substance: LEVODOPA
     Indication: Parkinson^s disease
     Dosage: AS NEEDED
     Route: 065
     Dates: start: 20210113

REACTIONS (1)
  - Death [Fatal]

NARRATIVE: CASE EVENT DATE: 20210623
